FAERS Safety Report 5146854-5 (Version None)
Quarter: 2006Q4

REPORT INFORMATION
  Report Type: 
  Country: None (occurrence: None)
  Receive Date: 20061109
  Receipt Date: 20061103
  Transmission Date: 20070319
  Serious: Yes (Other)
  Sender: FDA-Public Use
  Company Number: US-GLAXOSMITHKLINE-A0626160A

PATIENT
  Sex: Female

DRUGS (3)
  1. LAMICTAL [Suspect]
     Indication: BIPOLAR DISORDER
     Route: 048
  2. PROZAC [Concomitant]
  3. AMBIEN [Concomitant]

REACTIONS (4)
  - DYSURIA [None]
  - MICTURITION URGENCY [None]
  - POLLAKIURIA [None]
  - URINARY INCONTINENCE [None]
